FAERS Safety Report 25529269 (Version 1)
Quarter: 2025Q3

REPORT INFORMATION
  Report Type: Spontaneous
  Country: US (occurrence: US)
  Receive Date: 20250708
  Receipt Date: 20250708
  Transmission Date: 20251021
  Serious: Yes (Hospitalization, Other)
  Sender: NORDIC PHARMA
  Company Number: US-NORDIC PHARMA, INC-2025US003431

PATIENT

DRUGS (1)
  1. SUCCINYLCHOLINE [Suspect]
     Active Substance: SUCCINYLCHOLINE
     Indication: Induction of anaesthesia
     Route: 065

REACTIONS (5)
  - Hyperthermia malignant [Unknown]
  - End-tidal CO2 increased [Unknown]
  - Hyperkalaemia [Unknown]
  - Hyperhidrosis [Unknown]
  - Muscle rigidity [Unknown]
